FAERS Safety Report 5309171-6 (Version None)
Quarter: 2007Q2

REPORT INFORMATION
  Report Type: 
  Country: None (occurrence: None)
  Receive Date: 20070420
  Receipt Date: 20070410
  Transmission Date: 20071010
  Serious: Yes (Hospitalization)
  Sender: FDA-Public Use
  Company Number: GXKR2007DK03382

PATIENT
  Age: 86 Year
  Sex: Female

DRUGS (1)
  1. SIMVASTATIN [Suspect]
     Indication: HYPERCHOLESTEROLAEMIA
     Dosage: 40 MG, UNK, ORAL
     Route: 048
     Dates: start: 20070201, end: 20070324

REACTIONS (2)
  - MYOSITIS [None]
  - RHABDOMYOLYSIS [None]
